FAERS Safety Report 6191141-X (Version None)
Quarter: 2009Q2

REPORT INFORMATION
  Report Type: 
  Country: None (occurrence: None)
  Receive Date: 20090515
  Receipt Date: 20090511
  Transmission Date: 20091009
  Serious: No
  Sender: FDA-Public Use
  Company Number: US-JNJFOC-20090502520

PATIENT
  Sex: Male
  Weight: 95.26 kg

DRUGS (2)
  1. FENTANYL TRANSDERMAL SYSTEM [Suspect]
     Indication: PAIN IN EXTREMITY
     Route: 062
  2. ALL OTHER THERAPEUTIC PRODUCTS [Concomitant]
     Route: 065

REACTIONS (1)
  - WRONG TECHNIQUE IN DRUG USAGE PROCESS [None]
